FAERS Safety Report 4565363-5 (Version None)
Quarter: 2005Q1

REPORT INFORMATION
  Report Type: 
  Country: None (occurrence: None)
  Receive Date: 20050125
  Receipt Date: 20050125
  Transmission Date: 20050727
  Serious: Yes (Other)
  Sender: FDA-Public Use
  Company Number: None

PATIENT
  Age: 38 Year
  Sex: Female
  Weight: 63.5036 kg

DRUGS (1)
  1. ZOLOFT [Suspect]
     Indication: DEPRESSION
     Dosage: 100MG  DAILY ORAL
     Route: 048

REACTIONS (4)
  - DIZZINESS [None]
  - FLUSHING [None]
  - INFLUENZA LIKE ILLNESS [None]
  - NAUSEA [None]
